FAERS Safety Report 9134950 (Version 1)
Quarter: 2013Q1

REPORT INFORMATION
  Report Type: Spontaneous
  Country: US (occurrence: None)
  Receive Date: 20130215
  Receipt Date: 20130215
  Transmission Date: 20140127
  Serious: Yes (Death)
  Sender: FDA-Public Use
  Company Number: SYM-2013-00300

PATIENT
  Age: 33 Year
  Sex: Female

DRUGS (3)
  1. DIAZEPAM (DIAZEPAM) (DIAZEPAM) [Suspect]
     Indication: PRODUCT USED FOR UNKNOWN INDICATION
     Route: 048
  2. CLONAZEPAM (CLONAZEPAM) (CLONAZEPAM) [Suspect]
     Indication: PRODUCT USED FOR UNKNOWN INDICATION
     Route: 048
  3. AMANTADINE [Suspect]
     Indication: PRODUCT USED FOR UNKNOWN INDICATION
     Route: 048

REACTIONS (9)
  - Poisoning [None]
  - Convulsion [None]
  - Cardiac arrest [None]
  - Acute respiratory distress syndrome [None]
  - Septic shock [None]
  - Escherichia urinary tract infection [None]
  - Staphylococcal infection [None]
  - Haemophilus infection [None]
  - Ventricular tachycardia [None]
